FAERS Safety Report 20621223 (Version 1)
Quarter: 2022Q1

REPORT INFORMATION
  Report Type: Spontaneous
  Country: US (occurrence: US)
  Receive Date: 20220322
  Receipt Date: 20220322
  Transmission Date: 20220423
  Serious: No
  Sender: FDA-Public Use
  Company Number: US-BIOGEN-2022BI01107303

PATIENT
  Age: 25 Year
  Sex: Female

DRUGS (4)
  1. VUMERITY [Suspect]
     Active Substance: DIROXIMEL FUMARATE
     Indication: Multiple sclerosis
     Route: 048
     Dates: start: 20220317
  2. VITAMIN C [Concomitant]
     Active Substance: ASCORBIC ACID
     Route: 065
  3. IRON [Concomitant]
     Active Substance: IRON
     Route: 065
  4. VITAMIN B12 [Concomitant]
     Active Substance: CYANOCOBALAMIN
     Route: 065

REACTIONS (3)
  - Dizziness [Unknown]
  - Flushing [Unknown]
  - Feeling hot [Unknown]

NARRATIVE: CASE EVENT DATE: 20220317
